FAERS Safety Report 6720184-X (Version None)
Quarter: 2010Q2

REPORT INFORMATION
  Report Type: 
  Country: None (occurrence: None)
  Receive Date: 20100511
  Receipt Date: 20100423
  Transmission Date: 20101027
  Serious: No
  Sender: FDA-Public Use
  Company Number: US-ABBOTT-10P-163-0641322-00

PATIENT
  Age: 33 Year
  Sex: Male

DRUGS (7)
  1. NORVIR [Suspect]
     Indication: HIV INFECTION
     Dosage: SOFT CAPSULE
     Dates: start: 20090601, end: 20100101
  2. NORVIR [Suspect]
     Dosage: TABLETS
     Dates: start: 20100101
  3. TRUVADA [Concomitant]
     Indication: HIV INFECTION
     Dates: start: 20090101
  4. PROVISTA [Concomitant]
     Indication: HIV INFECTION
     Dates: start: 20090601
  5. LISINOPRIL [Concomitant]
     Indication: HYPERTENSION
  6. ALLEGRA [Concomitant]
     Indication: HYPERSENSITIVITY
  7. DAPSONE [Concomitant]
     Indication: DRUG USE FOR UNKNOWN INDICATION

REACTIONS (5)
  - BACK PAIN [None]
  - GINGIVAL SWELLING [None]
  - LIP SWELLING [None]
  - LOCAL SWELLING [None]
  - PRURITUS [None]
